FAERS Safety Report 7715834-5 (Version None)
Quarter: 2011Q3

REPORT INFORMATION
  Report Type: 
  Country: None (occurrence: None)
  Receive Date: 20110829
  Receipt Date: 20110829
  Transmission Date: 20111222
  Serious: Yes (Life-Threatening, Hospitalization)
  Sender: FDA-Public Use
  Company Number: None

PATIENT
  Age: 93 Year
  Sex: Male
  Weight: 76.7 kg

DRUGS (6)
  1. DABIGATRAN ETEXILATE [Suspect]
     Indication: ATRIAL FIBRILLATION
     Dosage: 150MG
     Route: 048
     Dates: start: 20110719, end: 20110823
  2. VALSARTAN [Concomitant]
     Route: 048
  3. TERAZOSIN HCL [Concomitant]
     Route: 048
  4. DABIGATRAN ETEXILATE [Concomitant]
     Route: 048
  5. PRAVASTATIN [Concomitant]
     Route: 048
  6. FUROSEMIDE [Concomitant]
     Route: 048

REACTIONS (2)
  - GASTRIC ULCER HAEMORRHAGE [None]
  - ANAEMIA [None]
